FAERS Safety Report 16272061 (Version 1)
Quarter: 2019Q2

REPORT INFORMATION
  Report Type: Spontaneous
  Country: GR (occurrence: GR)
  Receive Date: 20190503
  Receipt Date: 20190503
  Transmission Date: 20190711
  Serious: Yes (Other)
  Sender: FDA-Public Use
  Company Number: GR-ALLERGAN-1918630US

PATIENT
  Sex: Female

DRUGS (1)
  1. URSODEOXYCHOLIC ACID UNK [Suspect]
     Active Substance: URSODIOL
     Indication: CHOLESTASIS
     Dosage: UNK
     Route: 065

REACTIONS (7)
  - Portal hypertension [Recovering/Resolving]
  - Off label use [Unknown]
  - Hepatomegaly [Recovering/Resolving]
  - Cholestasis [Recovering/Resolving]
  - Pruritus [Recovering/Resolving]
  - Hepatic cirrhosis [Recovering/Resolving]
  - Cholelithiasis [Recovering/Resolving]
